FAERS Safety Report 16658175 (Version 3)
Quarter: 2019Q4

REPORT INFORMATION
  Report Type: Spontaneous
  Country: US (occurrence: US)
  Receive Date: 20190801
  Receipt Date: 20191007
  Transmission Date: 20200122
  Serious: Yes (Hospitalization, Other)
  Sender: FDA-Public Use
  Company Number: US-GLAXOSMITHKLINE-US2019AMR138141

PATIENT
  Age: 56 Year
  Sex: Female

DRUGS (1)
  1. BREO ELLIPTA [Suspect]
     Active Substance: FLUTICASONE FUROATE\VILANTEROL TRIFENATATE
     Indication: PRODUCT USED FOR UNKNOWN INDICATION
     Dosage: UNK
     Route: 065
     Dates: start: 2016

REACTIONS (6)
  - Intervertebral disc operation [Unknown]
  - Product dose omission [Unknown]
  - Loss of consciousness [Unknown]
  - Spinal operation [Unknown]
  - Fall [Unknown]
  - Asthma [Unknown]

NARRATIVE: CASE EVENT DATE: 20190107
